FAERS Safety Report 17115798 (Version 1)
Quarter: 2019Q4

REPORT INFORMATION
  Report Type: Spontaneous
  Country: ES (occurrence: ES)
  Receive Date: 20191205
  Receipt Date: 20191205
  Transmission Date: 20200122
  Serious: Yes (Life-Threatening, Hospitalization, Other)
  Sender: FDA-Public Use
  Company Number: ES-MYLANLABS-2019M1119715

PATIENT
  Sex: Male

DRUGS (2)
  1. TERBUTALINE [Suspect]
     Active Substance: TERBUTALINE
     Indication: PRODUCT USED FOR UNKNOWN INDICATION
     Dosage: UNK
  2. SALBUTAMOL [Suspect]
     Active Substance: ALBUTEROL
     Indication: PRODUCT USED FOR UNKNOWN INDICATION
     Dosage: UNK (0.04-0.1 MG)
     Route: 055

REACTIONS (19)
  - Factitious disorder [Unknown]
  - Tachypnoea [Unknown]
  - Hypokalaemia [Unknown]
  - Asthenia [Unknown]
  - Hypotonia [Unknown]
  - Myalgia [Unknown]
  - Drug abuse [Unknown]
  - Hyperhidrosis [Unknown]
  - Muscular weakness [Unknown]
  - Tachycardia [Unknown]
  - Tremor [Unknown]
  - Adrenocortical insufficiency acute [Unknown]
  - Munchausen^s syndrome [Unknown]
  - Hyperreflexia [Unknown]
  - Palpitations [Unknown]
  - Headache [Unknown]
  - Pallor [Unknown]
  - Long QT syndrome [Unknown]
  - Overdose [Unknown]
